FAERS Safety Report 13314601 (Version 1)
Quarter: 2017Q1

REPORT INFORMATION
  Report Type: Spontaneous
  Country: FR (occurrence: FR)
  Receive Date: 20170309
  Receipt Date: 20170309
  Transmission Date: 20170428
  Serious: Yes (Other)
  Sender: FDA-Public Use
  Company Number: FR-BAYER-2017-023958

PATIENT
  Age: 60 Year
  Sex: Male
  Weight: 70 kg

DRUGS (4)
  1. FLUDEX [Concomitant]
     Active Substance: INDAPAMIDE
     Indication: HYPERTENSION
  2. STIVARGA [Suspect]
     Active Substance: REGORAFENIB
     Indication: ADENOCARCINOMA
     Dosage: 120 MG, QD
     Dates: end: 201304
  3. FENTANYL. [Concomitant]
     Active Substance: FENTANYL
     Indication: HEPATIC PAIN
  4. STIVARGA [Suspect]
     Active Substance: REGORAFENIB
     Indication: ADENOCARCINOMA
     Dosage: 160 MG, QD
     Dates: start: 20121209

REACTIONS (9)
  - Metastatic neoplasm [None]
  - Dysphonia [None]
  - Intestinal obstruction [None]
  - Metastases to liver [None]
  - Metastases to peritoneum [None]
  - Hypertensive crisis [Recovered/Resolved]
  - Proteinuria [None]
  - Palmar-plantar erythrodysaesthesia syndrome [Recovering/Resolving]
  - Gait disturbance [None]

NARRATIVE: CASE EVENT DATE: 20121220
